FAERS Safety Report 19410884 (Version 2)
Quarter: 2021Q2

REPORT INFORMATION
  Report Type: Other
  Country: TW (occurrence: TW)
  Receive Date: 20210614
  Receipt Date: 20210624
  Transmission Date: 20210717
  Serious: Yes (Other)
  Sender: FDA-Public Use
  Company Number: TW-ROCHE-2847363

PATIENT
  Age: 57 Year
  Sex: Female

DRUGS (2)
  1. AVASTIN [Suspect]
     Active Substance: BEVACIZUMAB
     Indication: NON-SMALL CELL LUNG CANCER
     Route: 065
     Dates: end: 20210512
  2. TECENTRIQ [Suspect]
     Active Substance: ATEZOLIZUMAB
     Indication: NON-SMALL CELL LUNG CANCER
     Route: 065

REACTIONS (2)
  - Cerebral haemorrhage [Unknown]
  - Hydrocephalus [Unknown]

NARRATIVE: CASE EVENT DATE: 202105
